FAERS Safety Report 13277032 (Version 1)
Quarter: 2017Q1

REPORT INFORMATION
  Report Type: Spontaneous
  Country: US (occurrence: US)
  Receive Date: 20170227
  Receipt Date: 20170227
  Transmission Date: 20170428
  Serious: Yes (Hospitalization)
  Sender: FDA-Public Use
  Company Number: None

PATIENT
  Age: 48 Year
  Sex: Female

DRUGS (13)
  1. FENOFIBRIC [Concomitant]
     Active Substance: FENOFIBRIC ACID
  2. HUMALOG [Concomitant]
     Active Substance: INSULIN LISPRO
  3. MEOPROL [Concomitant]
  4. FUROSEMIDE. [Concomitant]
     Active Substance: FUROSEMIDE
  5. AMOX/CLAV [Concomitant]
     Active Substance: AMOXICILLIN\CLAVULANATE POTASSIUM
  6. CLOPIDOGREL [Concomitant]
     Active Substance: CLOPIDOGREL BISULFATE
  7. MINOXIDIL. [Concomitant]
     Active Substance: MINOXIDIL
  8. OXYCODONE [Concomitant]
     Active Substance: OXYCODONE
  9. MYCOPHENOLATE 250 MG [Suspect]
     Active Substance: MYCOPHENOLIC ACID
     Indication: RENAL TRANSPLANT
     Dosage: 750 MG AM  500 MG PM  BID PO
     Route: 048
     Dates: start: 20150203
  10. TACROLIMUS 1MG [Suspect]
     Active Substance: TACROLIMUS
     Indication: RENAL TRANSPLANT
     Route: 048
     Dates: start: 20150203
  11. GENTAMICIN. [Concomitant]
     Active Substance: GENTAMICIN
  12. LOSARTAN. [Concomitant]
     Active Substance: LOSARTAN
  13. NIFEDICAL XL [Concomitant]
     Active Substance: NIFEDIPINE

REACTIONS (1)
  - Thyroid operation [None]

NARRATIVE: CASE EVENT DATE: 20170219
